FAERS Safety Report 23134763 (Version 1)
Quarter: 2023Q4

REPORT INFORMATION
  Report Type: Spontaneous
  Country: CA (occurrence: CA)
  Receive Date: 20231101
  Receipt Date: 20231101
  Transmission Date: 20240110
  Serious: Yes (Other)
  Sender: FDA-Public Use
  Company Number: CA-PFIZER INC-202300287091

PATIENT
  Age: 47 Year
  Sex: Male

DRUGS (9)
  1. METHOTREXATE SODIUM [Suspect]
     Active Substance: METHOTREXATE SODIUM
     Indication: Ankylosing spondylitis
     Dosage: 2.5 MG ORAL TABLET 8 TABLET(S) ONCE A WEEK
     Dates: start: 20230529
  2. METHOTREXATE SODIUM [Suspect]
     Active Substance: METHOTREXATE SODIUM
     Dosage: 20 MG, WEEKLY
     Route: 048
     Dates: start: 20230726, end: 20230821
  3. FOLIC ACID [Concomitant]
     Active Substance: FOLIC ACID
     Dosage: 5 MG, WEEKLY(5 MG ORAL TABLET 1 TABLET(S) ONCE A WEEK X 52 WEEK)
     Route: 048
     Dates: start: 20230529
  4. NAPROXEN [Concomitant]
     Active Substance: NAPROXEN
     Dosage: 500 MG, 2X/DAY, MORE THAN 1 YEAR
  5. NAPROXEN [Concomitant]
     Active Substance: NAPROXEN
     Dosage: 500 MG, 2X/DAY, (DECREASE) AS NEEDED X 3 MTH30 WITH 1 REFILLS
     Dates: start: 20230209
  6. PREDNISONE [Concomitant]
     Active Substance: PREDNISONE
     Dosage: 5 MG, (DECREASE)
     Route: 048
     Dates: start: 20230529
  7. RABEPRAZOLE SODIUM [Concomitant]
     Active Substance: RABEPRAZOLE SODIUM
     Dosage: 20 MG, DAILY,  DELAYED RELEASE (ENTERIC COATED) 1 TABLET(S) ONCE DAILY X 3 MTH30
     Route: 048
     Dates: start: 20221031
  8. CELEBREX [Concomitant]
     Active Substance: CELECOXIB
     Dosage: 200 MG, 2X/DAY(1 CAPSULE(S) TWO TIMES DAILY AS NEEDED X 1 MTH30 )
     Dates: start: 20230630
  9. CEFUROXIME AXETIL [Concomitant]
     Active Substance: CEFUROXIME AXETIL
     Dosage: 500 MG
     Route: 048

REACTIONS (7)
  - Ankylosing spondylitis [Unknown]
  - Drug ineffective for unapproved indication [Unknown]
  - Off label use [Unknown]
  - Enthesopathy [Unknown]
  - Spondyloarthropathy [Unknown]
  - Sacroiliitis [Unknown]
  - Joint effusion [Unknown]

NARRATIVE: CASE EVENT DATE: 20230101
